FAERS Safety Report 24297527 (Version 1)
Quarter: 2024Q3

REPORT INFORMATION
  Report Type: Spontaneous
  Country: IL (occurrence: IL)
  Receive Date: 20240909
  Receipt Date: 20240909
  Transmission Date: 20241017
  Serious: Yes (Death, Hospitalization, Other)
  Sender: ROCHE
  Company Number: IL-ROCHE-10000072573

PATIENT
  Age: 85 Year
  Sex: Male

DRUGS (1)
  1. RITUXIMAB [Suspect]
     Active Substance: RITUXIMAB
     Indication: Autoimmune haemolytic anaemia
     Route: 065

REACTIONS (3)
  - Pneumonia klebsiella [Fatal]
  - COVID-19 [Unknown]
  - Sepsis [Unknown]
